FAERS Safety Report 9636146 (Version 1)
Quarter: 2013Q4

REPORT INFORMATION
  Report Type: Spontaneous
  Country: BR (occurrence: BR)
  Receive Date: 20131021
  Receipt Date: 20131021
  Transmission Date: 20140711
  Serious: Yes (Hospitalization)
  Sender: FDA-Public Use
  Company Number: BR-AMGEN-BRASP2013073575

PATIENT
  Age: 51 Year
  Sex: Female
  Weight: 53 kg

DRUGS (4)
  1. ENBREL [Suspect]
     Indication: PSORIATIC ARTHROPATHY
     Dosage: 50 MG, WEEKLY
     Route: 058
     Dates: start: 201205, end: 2013
  2. ENBREL [Suspect]
     Dosage: 50 MG, WEEKLY
     Route: 065
     Dates: start: 20130915
  3. PURAN T4 [Concomitant]
     Indication: HYPOTHYROIDISM
     Dosage: 75 MG, UNSPECIFIED FREQUENCY
     Dates: start: 2012
  4. PURAN T4 [Concomitant]
     Dosage: 50 MG, UNSPECIFIED FREQUENCY

REACTIONS (2)
  - Cerebrovascular accident [Unknown]
  - Depression [Unknown]
